FAERS Safety Report 8111870-8 (Version None)
Quarter: 2012Q1

REPORT INFORMATION
  Report Type: 
  Country: None (occurrence: None)
  Receive Date: 20120203
  Receipt Date: 20120126
  Transmission Date: 20120608
  Serious: Yes (Hospitalization)
  Sender: FDA-Public Use
  Company Number: SE-ABBOTT-12P-150-0898782-00

PATIENT
  Sex: Male

DRUGS (13)
  1. METOPROLOL [Concomitant]
     Indication: HYPERTENSION
     Dates: start: 20110612
  2. FUROSEMIDE [Concomitant]
     Indication: PRODUCT USED FOR UNKNOWN INDICATION
     Dosage: 1 TABLET AT 8AM AND 0.5 TABLET AT 2PM, DAILY
     Dates: start: 20110608
  3. AMLODIPINE [Concomitant]
     Indication: HYPERTENSION
     Dates: start: 20110608
  4. ZEMPLAR [Suspect]
     Indication: PROTEINURIA
  5. SODIUM BICARBONATE [Concomitant]
     Indication: ACIDOSIS
     Dosage: 1 TABLET AT 8AM DAILY. 12 TABLETS AT 2PM DAILY, 1 TABLET AT 8PM DAILY
     Dates: start: 20100702
  6. CANDESARTAN CILEXETIL [Concomitant]
     Indication: HYPERTENSION
     Dates: start: 20061206
  7. ENALAPRIL MALEATE [Concomitant]
     Indication: HYPERTENSION
     Dates: start: 20110612
  8. INSULIN DETEMIR [Concomitant]
     Indication: DIABETES MELLITUS
     Dosage: 40 UNITS AT 8AM AND 30 UNITS AT 8 PM, DAILY
     Route: 058
     Dates: start: 20101018
  9. QUININE [Concomitant]
     Indication: MUSCLE SPASMS
     Dates: start: 20090828
  10. ECONAZOL/TRIAMSINOLONE (PEVISONE) [Concomitant]
     Indication: PRODUCT USED FOR UNKNOWN INDICATION
     Dosage: TWICE DAILY ON THE GROIN.  STRENGTH 1MG/G + 10MG/G
     Dates: start: 20110608
  11. SIMVASTATIN [Concomitant]
     Indication: HYPERCHOLESTEROLAEMIA
     Dates: start: 20110612
  12. POTASSIUM CHLORIDE [Concomitant]
     Indication: PRODUCT USED FOR UNKNOWN INDICATION
     Dates: start: 20110609
  13. ZEMPLAR [Suspect]
     Indication: HYPERPARATHYROIDISM SECONDARY
     Dates: start: 20110311

REACTIONS (7)
  - DEPRESSION [None]
  - HYPERGLYCAEMIA [None]
  - ARTHRALGIA [None]
  - GENERAL PHYSICAL HEALTH DETERIORATION [None]
  - DEHYDRATION [None]
  - BACK PAIN [None]
  - ACTIVATED PARTIAL THROMBOPLASTIN TIME PROLONGED [None]
